FAERS Safety Report 15498511 (Version 1)
Quarter: 2018Q4

REPORT INFORMATION
  Report Type: Spontaneous
  Country: CH (occurrence: CH)
  Receive Date: 20181015
  Receipt Date: 20181015
  Transmission Date: 20190205
  Serious: Yes (Hospitalization, Other)
  Sender: FDA-Public Use
  Company Number: CH-MYLANLABS-2018M1074967

PATIENT
  Sex: Male
  Weight: 2.5 kg

DRUGS (3)
  1. CALCITONIN SALMON. [Suspect]
     Active Substance: CALCITONIN SALMON
     Indication: PRODUCT USED FOR UNKNOWN INDICATION
     Dosage: UNK
     Route: 064
  2. CINACALCET. [Suspect]
     Active Substance: CINACALCET
     Indication: PRODUCT USED FOR UNKNOWN INDICATION
     Route: 064
  3. CALCIUM [Suspect]
     Active Substance: CALCIUM
     Indication: PRODUCT USED FOR UNKNOWN INDICATION
     Route: 064

REACTIONS (8)
  - Premature baby [Recovered/Resolved]
  - Bradycardia [Unknown]
  - Hyponatraemia [Unknown]
  - Foetal exposure during pregnancy [Recovered/Resolved]
  - Apnoea [Unknown]
  - Neonatal respiratory distress syndrome [Unknown]
  - Hyperbilirubinaemia [Unknown]
  - Neonatal insufficient breast milk syndrome [Unknown]
